FAERS Safety Report 6418868-6 (Version None)
Quarter: 2009Q4

REPORT INFORMATION
  Report Type: 
  Country: None (occurrence: None)
  Receive Date: 20091029
  Receipt Date: 20091019
  Transmission Date: 20100525
  Serious: Yes (Hospitalization)
  Sender: FDA-Public Use
  Company Number: DE-BIOGENIDEC-2009BI033594

PATIENT
  Age: 38 Year
  Sex: Female
  Weight: 118 kg

DRUGS (11)
  1. AVONEX [Suspect]
     Indication: RELAPSING-REMITTING MULTIPLE SCLEROSIS
     Route: 030
     Dates: start: 20080901, end: 20090801
  2. AVONEX [Suspect]
     Route: 030
     Dates: start: 20090801
  3. LYRICA [Concomitant]
     Indication: NEURALGIA
     Route: 048
  4. NOVALGIN [Concomitant]
     Indication: PAIN
     Route: 048
  5. AMITRYPTILIN [Concomitant]
     Indication: PAIN
     Route: 048
  6. AMITRYPTILIN [Concomitant]
     Route: 048
  7. L-THYROXIN [Concomitant]
     Indication: HYPOTHYROIDISM
     Route: 048
  8. BUSCOPAN [Concomitant]
     Indication: PAIN
     Route: 048
  9. MIRANOVA [Concomitant]
     Indication: CONTRACEPTION
     Route: 048
  10. FORADIL [Concomitant]
     Indication: ASTHMA
     Route: 048
  11. ALBUTEROL [Concomitant]
     Indication: ASTHMA
     Route: 048

REACTIONS (7)
  - ANXIETY [None]
  - BILIARY COLIC [None]
  - FATIGUE [None]
  - HYPOTHYROIDISM [None]
  - INJECTION SITE HAEMORRHAGE [None]
  - NEURALGIA [None]
  - URINARY RETENTION [None]
